FAERS Safety Report 23630800 (Version 1)
Quarter: 2024Q1

REPORT INFORMATION
  Report Type: Spontaneous
  Country: US (occurrence: US)
  Receive Date: 20240314
  Receipt Date: 20240314
  Transmission Date: 20240409
  Serious: Yes (Hospitalization, Other)
  Sender: FDA-Public Use
  Company Number: US-ASTELLAS-2024EU002319

PATIENT
  Age: 70 Year
  Sex: Female

DRUGS (6)
  1. TACROLIMUS [Interacting]
     Active Substance: TACROLIMUS
     Indication: Renal and liver transplant
     Route: 065
  2. TACROLIMUS [Interacting]
     Active Substance: TACROLIMUS
     Dosage: UNK UNK, UNKNOWN FREQ. (LOWER DOSE)
     Route: 065
  3. NIRMATRELVIR\RITONAVIR [Interacting]
     Active Substance: NIRMATRELVIR\RITONAVIR
     Indication: COVID-19
     Dosage: UNK UNK, TWICE DAILY (300 MG/100 MG)
     Route: 048
  4. PHENYTOIN [Interacting]
     Active Substance: PHENYTOIN
     Indication: Enzyme induction
     Dosage: UNK UNK, UNKNOWN FREQ.
     Route: 042
  5. MYCOPHENOLATE MOFETIL [Concomitant]
     Active Substance: MYCOPHENOLATE MOFETIL
     Indication: Renal and liver transplant
     Route: 065
  6. PREDNISONE [Concomitant]
     Active Substance: PREDNISONE
     Indication: Renal and liver transplant
     Route: 065

REACTIONS (6)
  - COVID-19 [Recovering/Resolving]
  - Acute kidney injury [Recovered/Resolved]
  - Hypoxia [Recovering/Resolving]
  - Toxicity to various agents [Recovering/Resolving]
  - Drug interaction [Unknown]
  - Drug interaction [Unknown]
